FAERS Safety Report 15225903 (Version 2)
Quarter: 2018Q3

REPORT INFORMATION
  Report Type: Spontaneous
  Country: JP (occurrence: JP)
  Receive Date: 20180801
  Receipt Date: 20180809
  Transmission Date: 20181010
  Serious: Yes (Other)
  Sender: FDA-Public Use
  Company Number: JP-CONCORDIA PHARMACEUTICALS INC.-GSH201807-002658

PATIENT
  Age: 41 Year
  Sex: Male

DRUGS (5)
  1. DOPAMINE [Concomitant]
     Active Substance: DOPAMINE\DOPAMINE HYDROCHLORIDE
  2. PREDNISOLONE. [Suspect]
     Active Substance: PREDNISOLONE
     Dosage: FROM DAY 80
  3. FUROSEMIDE. [Concomitant]
     Active Substance: FUROSEMIDE
  4. GANCICLOVIR. [Concomitant]
     Active Substance: GANCICLOVIR
     Indication: GRAFT VERSUS HOST DISEASE
  5. PREDNISOLONE. [Suspect]
     Active Substance: PREDNISOLONE
     Indication: GRAFT VERSUS HOST DISEASE
     Dosage: ON DAY 68

REACTIONS (3)
  - Pleural effusion [Unknown]
  - Condition aggravated [Unknown]
  - Therapy non-responder [Unknown]
